FAERS Safety Report 6968162-X (Version None)
Quarter: 2010Q3

REPORT INFORMATION
  Report Type: 
  Country: None (occurrence: None)
  Receive Date: 20100907
  Receipt Date: 20100827
  Transmission Date: 20110219
  Serious: Yes (Hospitalization, Other)
  Sender: FDA-Public Use
  Company Number: CA-JNJFOC-20100900269

PATIENT
  Age: 44 Year
  Sex: Male

DRUGS (4)
  1. REMICADE [Suspect]
     Indication: CROHN'S DISEASE
     Dosage: DOSE ALSO 5 MG/KG; THERAPY SINCE SPRING 2009
     Route: 042
  2. REMICADE [Suspect]
     Dosage: DOSE ALSO 5 MG/KG; THERAPY SINCE SPRING 2009
     Route: 042
  3. ANTI-EPILEPTIC DRUG UNSPECIFIED [Concomitant]
     Indication: EPILEPSY
  4. CORTICOSTEROIDS [Concomitant]
     Indication: CROHN'S DISEASE

REACTIONS (2)
  - CROHN'S DISEASE [None]
  - STATUS EPILEPTICUS [None]
